FAERS Safety Report 10081871 (Version 2)
Quarter: 2014Q2

REPORT INFORMATION
  Report Type: Spontaneous
  Country: BE (occurrence: BE)
  Receive Date: 20140416
  Receipt Date: 20140416
  Transmission Date: 20141212
  Serious: Yes (Hospitalization, Other)
  Sender: FDA-Public Use
  Company Number: BE-ASTRAZENECA-2014SE23098

PATIENT
  Age: 27063 Day
  Sex: Male
  Weight: 70 kg

DRUGS (11)
  1. BRILIQUE [Suspect]
     Indication: ACUTE MYOCARDIAL INFARCTION
     Route: 048
     Dates: start: 20140203
  2. BRILIQUE [Suspect]
     Indication: ACUTE MYOCARDIAL INFARCTION
     Route: 048
     Dates: start: 20140204, end: 20140204
  3. PROGOR [Suspect]
     Indication: HYPERTENSION
     Route: 065
     Dates: end: 20140204
  4. AZARGAN [Suspect]
     Indication: OPEN ANGLE GLAUCOMA
     Route: 065
     Dates: end: 201402
  5. ASAFLOW [Concomitant]
     Indication: HYPERTENSION
  6. PLAVIX [Concomitant]
  7. PLAVIX [Concomitant]
  8. ALPHAGEAN [Concomitant]
     Indication: OPEN ANGLE GLAUCOMA
  9. XALATAN [Concomitant]
     Indication: OPEN ANGLE GLAUCOMA
  10. COVERSYL [Concomitant]
     Indication: HYPERTENSION
  11. COVERSYL [Concomitant]
     Indication: HYPERTENSION

REACTIONS (2)
  - Condition aggravated [Recovered/Resolved]
  - Atrioventricular block complete [Recovered/Resolved]
